FAERS Safety Report 7525338-0 (Version None)
Quarter: 2011Q2

REPORT INFORMATION
  Report Type: 
  Country: None (occurrence: None)
  Receive Date: 20110606
  Receipt Date: 20110529
  Transmission Date: 20111010
  Serious: Yes (Other)
  Sender: FDA-Public Use
  Company Number: TW-BAXTER-2011BH018395

PATIENT

DRUGS (3)
  1. MESNA [Concomitant]
     Indication: HEAD AND NECK CANCER
     Route: 065
  2. ETOPOSIDE [Suspect]
     Indication: HEAD AND NECK CANCER
     Route: 040
  3. IFOSFAMIDE [Suspect]
     Indication: HEAD AND NECK CANCER
     Route: 042

REACTIONS (1)
  - MUCOSAL INFLAMMATION [None]
